FAERS Safety Report 5926268-8 (Version None)
Quarter: 2008Q4

REPORT INFORMATION
  Report Type: 
  Country: None (occurrence: None)
  Receive Date: 20081022
  Receipt Date: 20081009
  Transmission Date: 20090506
  Serious: Yes (Hospitalization, Other)
  Sender: FDA-Public Use
  Company Number: US-BAYER-200823261NA

PATIENT
  Age: 29 Year
  Sex: Female

DRUGS (6)
  1. BETASERON [Suspect]
     Indication: RELAPSING-REMITTING MULTIPLE SCLEROSIS
     Dosage: TOTAL DAILY DOSE: 8 MIU
     Route: 058
     Dates: start: 20000920, end: 20070901
  2. STEROIDS [Suspect]
  3. CYMBALTA [Concomitant]
  4. HYDROCODONE BITARTRATE [Concomitant]
  5. DIAZEPAM [Concomitant]
  6. AVONEX [Concomitant]

REACTIONS (4)
  - DRUG HYPERSENSITIVITY [None]
  - HYSTERECTOMY [None]
  - INTERVERTEBRAL DISC PROTRUSION [None]
  - TREMOR [None]
